FAERS Safety Report 5622271-6 (Version None)
Quarter: 2008Q1

REPORT INFORMATION
  Report Type: 
  Country: None (occurrence: None)
  Receive Date: 20080211
  Receipt Date: 20080128
  Transmission Date: 20080703
  Serious: Yes (Death, Other)
  Sender: FDA-Public Use
  Company Number: US-ROCHE-545611

PATIENT
  Age: 37 Year
  Sex: Female

DRUGS (3)
  1. DIAZEPAM [Suspect]
     Indication: UNEVALUABLE EVENT
     Route: 065
  2. FLUOXETINE [Interacting]
     Route: 065
  3. PROPOXYPHENE HYDROCHLORIDE [Interacting]
     Route: 065

REACTIONS (2)
  - DRUG TOXICITY [None]
  - OVERDOSE [None]
